FAERS Safety Report 6011295-5 (Version None)
Quarter: 2008Q4

REPORT INFORMATION
  Report Type: 
  Country: None (occurrence: None)
  Receive Date: 20081218
  Receipt Date: 20081205
  Transmission Date: 20090506
  Serious: Yes (Hospitalization, Other)
  Sender: FDA-Public Use
  Company Number: FR-PFIZER INC-2008150260

PATIENT

DRUGS (5)
  1. ATENOLOL [Suspect]
     Dosage: UNK MG, 1X/DAY
     Dates: start: 20050525
  2. FLECAINE [Suspect]
     Dosage: UNK
     Route: 048
     Dates: start: 20060406
  3. ALDACTONE [Suspect]
     Dosage: 25 MG, 1X/DAY
     Route: 048
     Dates: start: 20060406
  4. TAHOR [Suspect]
     Dosage: 40 MG, 1X/DAY
     Route: 048
     Dates: start: 20040406
  5. ASPIRIN [Concomitant]
     Route: 048

REACTIONS (2)
  - ANTINUCLEAR ANTIBODY [None]
  - CYTOLYTIC HEPATITIS [None]
